FAERS Safety Report 10565626 (Version 1)
Quarter: 2014Q4

REPORT INFORMATION
  Report Type: Spontaneous
  Country: US (occurrence: None)
  Receive Date: 20141104
  Receipt Date: 20141104
  Transmission Date: 20150529
  Serious: Yes (Life-Threatening, Hospitalization)
  Sender: FDA-Public Use
  Company Number: None

PATIENT
  Age: 64 Year
  Sex: Male
  Weight: 113 kg

DRUGS (3)
  1. ENOXAPARIN [Suspect]
     Active Substance: ENOXAPARIN
     Indication: PULMONARY EMBOLISM
     Route: 058
     Dates: start: 20141022, end: 20141026
  2. ENOXAPARIN [Suspect]
     Active Substance: ENOXAPARIN
     Indication: DRUG THERAPY
     Route: 058
     Dates: start: 20141022, end: 20141026
  3. WARFARIN 5 MG [Suspect]
     Active Substance: WARFARIN
     Indication: PULMONARY EMBOLISM
     Route: 048
     Dates: start: 20141022, end: 20141026

REACTIONS (3)
  - Hepatic haematoma [None]
  - Hypotension [None]
  - Haemoglobin decreased [None]

NARRATIVE: CASE EVENT DATE: 20141026
